FAERS Safety Report 7033651-9 (Version None)
Quarter: 2010Q4

REPORT INFORMATION
  Report Type: 
  Country: None (occurrence: None)
  Receive Date: 20101005
  Receipt Date: 20100922
  Transmission Date: 20110411
  Serious: Yes (Hospitalization)
  Sender: FDA-Public Use
  Company Number: 2010-3019

PATIENT
  Age: 76 Year
  Sex: Female
  Weight: 70 kg

DRUGS (1)
  1. DYSPORT [Suspect]
     Indication: TORTICOLLIS
     Dosage: 150 UNITS (150 UNITS, SINGLE CYCLE)
     Dates: start: 20100101, end: 20100101

REACTIONS (3)
  - DYSPHAGIA [None]
  - MUSCLE ATROPHY [None]
  - WRONG TECHNIQUE IN DRUG USAGE PROCESS [None]
